FAERS Safety Report 9103130 (Version 1)
Quarter: 2013Q1

REPORT INFORMATION
  Report Type: Report from Study
  Country: CA (occurrence: CA)
  Receive Date: 20130218
  Receipt Date: 20130218
  Transmission Date: 20140127
  Serious: Yes (Other)
  Sender: FDA-Public Use
  Company Number: CA-ROCHE-1191369

PATIENT
  Age: 41 Year
  Sex: 0

DRUGS (5)
  1. AVASTIN [Suspect]
     Indication: COLORECTAL CANCER
     Route: 065
     Dates: start: 201101, end: 201106
  2. AVASTIN [Suspect]
     Route: 065
     Dates: start: 201106, end: 201112
  3. LEUCOVORIN [Suspect]
     Indication: COLORECTAL CANCER
     Route: 065
     Dates: start: 201106, end: 201112
  4. 5-FU [Suspect]
     Indication: COLORECTAL CANCER
     Route: 065
     Dates: start: 201106, end: 201112
  5. IRINOTECAN [Suspect]
     Indication: COLORECTAL CANCER
     Route: 065
     Dates: start: 201106, end: 201112

REACTIONS (2)
  - Disease progression [Unknown]
  - Toxicity to various agents [Unknown]
